FAERS Safety Report 11369241 (Version 1)
Quarter: 2015Q3

REPORT INFORMATION
  Report Type: Spontaneous
  Country: US (occurrence: US)
  Receive Date: 20150812
  Receipt Date: 20150812
  Transmission Date: 20151125
  Serious: No
  Sender: FDA-Public Use
  Company Number: US-JNJFOC-20150208981

PATIENT
  Age: 70 Year
  Sex: Female

DRUGS (1)
  1. USTEKINUMAB [Suspect]
     Active Substance: USTEKINUMAB
     Indication: DERMATITIS ATOPIC
     Dosage: SECOND DOSE AFTER 3 WEEKS AND THIRD DOSE AFTER 8 WEEKS
     Route: 058

REACTIONS (2)
  - Therapeutic response unexpected [Unknown]
  - Off label use [Unknown]
